FAERS Safety Report 7612912-6 (Version None)
Quarter: 2011Q3

REPORT INFORMATION
  Report Type: 
  Country: None (occurrence: None)
  Receive Date: 20110712
  Receipt Date: 20110421
  Transmission Date: 20111222
  Serious: Yes (Hospitalization, Disabling, Other)
  Sender: FDA-Public Use
  Company Number: 025136

PATIENT
  Age: 48 Year
  Sex: Female
  Weight: 48 kg

DRUGS (4)
  1. LAMOTRIGINE [Concomitant]
  2. KEPPRA [Suspect]
     Indication: EPILEPSY
     Dosage: 1000; 1500; 2000 MG DAILY, ORAL,
     Route: 048
     Dates: start: 20110119
  3. KEPPRA [Suspect]
     Indication: EPILEPSY
     Dosage: 1000; 1500; 2000 MG DAILY, ORAL,
     Route: 048
     Dates: start: 20090831, end: 20100901
  4. KEPPRA [Suspect]
     Indication: EPILEPSY
     Dosage: 1000; 1500; 2000 MG DAILY, ORAL,
     Route: 048
     Dates: start: 20100923, end: 20110101

REACTIONS (3)
  - EPILEPSY [None]
  - ANXIETY [None]
  - MOOD SWINGS [None]
